FAERS Safety Report 4598857-7 (Version None)
Quarter: 2005Q1

REPORT INFORMATION
  Report Type: 
  Country: None (occurrence: None)
  Receive Date: 20050302
  Receipt Date: 20050302
  Transmission Date: 20050727
  Serious: Yes (Other)
  Sender: FDA-Public Use
  Company Number: None

PATIENT
  Sex: Male
  Weight: 109.7705 kg

DRUGS (1)
  1. BUPROPION 150 [Suspect]
     Indication: SMOKING CESSATION THERAPY
     Dosage: 150 BID ORAL
     Route: 048
     Dates: start: 20050211, end: 20050228

REACTIONS (2)
  - BURNING SENSATION [None]
  - RASH MACULAR [None]
